FAERS Safety Report 6496312-0 (Version None)
Quarter: 2009Q4

REPORT INFORMATION
  Report Type: 
  Country: None (occurrence: None)
  Receive Date: 20091210
  Receipt Date: 20091125
  Transmission Date: 20100525
  Serious: Yes (Hospitalization)
  Sender: FDA-Public Use
  Company Number: 2009003424

PATIENT
  Age: 80 Year
  Sex: Male

DRUGS (10)
  1. ERLOTINIB / PLACEBO [Suspect]
     Indication: NON-SMALL CELL LUNG CANCER
     Dosage: ORAL
     Route: 048
     Dates: start: 20051207, end: 20090811
  2. TRAMADOL HCL [Concomitant]
  3. AMITRIPTYLINE HYDROCHLORIDE [Concomitant]
  4. OMEPRAZOLE [Concomitant]
  5. AMLODIPINE [Concomitant]
  6. ENSURE (ENSURE) [Concomitant]
  7. SALBUTAMOL (SALBUTAMOL) [Concomitant]
  8. MOVICOL (NULYTELY) [Concomitant]
  9. FLUTICASONE PROPIONATE [Concomitant]
  10. SALMETEROL (SALMETEROL) [Concomitant]

REACTIONS (5)
  - CONFUSIONAL STATE [None]
  - FAECAL INCONTINENCE [None]
  - HYDROCEPHALUS [None]
  - MUSCULAR WEAKNESS [None]
  - URINARY INCONTINENCE [None]
